FAERS Safety Report 24214304 (Version 1)
Quarter: 2024Q3

REPORT INFORMATION
  Report Type: Spontaneous
  Country: US (occurrence: None)
  Receive Date: 20240814
  Receipt Date: 20240814
  Transmission Date: 20241016
  Serious: No
  Sender: Public
  Company Number: None

PATIENT
  Age: 60 Year
  Sex: Female
  Weight: 42.4 kg

DRUGS (9)
  1. XIAFLEX [Suspect]
     Active Substance: COLLAGENASE CLOSTRIDIUM HISTOLYTICUM
     Indication: Dupuytren^s contracture
     Dosage: FREQUENCY : ONCE;?
     Route: 030
  2. XIAFLEX [Suspect]
     Active Substance: COLLAGENASE CLOSTRIDIUM HISTOLYTICUM
  3. FLUTICASONE [Concomitant]
     Active Substance: FLUTICASONE
  4. LORATADINE [Concomitant]
     Active Substance: LORATADINE
  5. ERGOCALCIFEROL [Concomitant]
     Active Substance: ERGOCALCIFEROL
  6. DICLOFENAC [Concomitant]
     Active Substance: DICLOFENAC
  7. TRAZODONE [Concomitant]
     Active Substance: TRAZODONE HYDROCHLORIDE
  8. VENLAFAXINE HYDROCHLORIDE [Concomitant]
     Active Substance: VENLAFAXINE HYDROCHLORIDE
  9. ESTRADIOL [Concomitant]
     Active Substance: ESTRADIOL

REACTIONS (6)
  - Rash vesicular [None]
  - Arthralgia [None]
  - Contusion [None]
  - Hypoaesthesia [None]
  - Pruritus [None]
  - Joint swelling [None]

NARRATIVE: CASE EVENT DATE: 20240724
